FAERS Safety Report 8765927 (Version 1)
Quarter: 2012Q4

REPORT INFORMATION
  Report Type: 
  Country: US (occurrence: US)
  Receive Date: 20120904
  Receipt Date: 20120904
  Transmission Date: 20130627
  Serious: Yes (Other)
  Sender: FDA-Public Use
  Company Number: US-PFIZER INC-2012211753

PATIENT
  Age: 70 Year
  Sex: Female
  Weight: 99.77 kg

DRUGS (4)
  1. DETROL LA [Suspect]
     Indication: HYPERTONIC BLADDER
     Dosage: UNK, 1x/day
     Route: 048
     Dates: start: 2005, end: 2007
  2. VESICARE [Suspect]
     Dosage: UNK
     Dates: start: 2007
  3. ATENOLOL [Concomitant]
     Indication: HYPERTENSION
     Dosage: UNK
  4. NORVASC [Concomitant]
     Indication: HYPERTENSION
     Dosage: UNK

REACTIONS (6)
  - Age-related macular degeneration [Unknown]
  - Weight increased [Unknown]
  - Pollakiuria [Unknown]
  - Insomnia [Unknown]
  - Dry mouth [Unknown]
  - Constipation [Unknown]
